FAERS Safety Report 14640428 (Version 1)
Quarter: 2018Q1

REPORT INFORMATION
  Report Type: Spontaneous
  Country: US (occurrence: US)
  Receive Date: 20180315
  Receipt Date: 20180315
  Transmission Date: 20180509
  Serious: No
  Sender: FDA-Public Use
  Company Number: US-PFIZER INC-2018105186

PATIENT
  Age: 39 Year
  Sex: Female
  Weight: 136 kg

DRUGS (1)
  1. PREMARIN [Suspect]
     Active Substance: ESTROGENS, CONJUGATED
     Indication: BLOOD OESTROGEN
     Dosage: 1.25 MG, DAILY
     Route: 048
     Dates: start: 201711, end: 201801

REACTIONS (2)
  - Drug ineffective [Recovered/Resolved]
  - Blood oestrogen decreased [Recovered/Resolved]

NARRATIVE: CASE EVENT DATE: 201711
